FAERS Safety Report 25106195 (Version 2)
Quarter: 2025Q3

REPORT INFORMATION
  Report Type: Spontaneous
  Country: EU (occurrence: EU)
  Receive Date: 20250321
  Receipt Date: 20250810
  Transmission Date: 20251021
  Serious: Yes (Life-Threatening, Other)
  Sender: ALEXION PHARMACEUTICALS
  Company Number: EU-SA-2025SA061094

PATIENT
  Age: 4 Month
  Sex: Male

DRUGS (1)
  1. BEYFORTUS [Suspect]
     Active Substance: NIRSEVIMAB-ALIP
     Indication: Prophylaxis
     Route: 065
     Dates: start: 20241119, end: 20241119

REACTIONS (3)
  - Respiratory syncytial virus infection [Unknown]
  - Loss of consciousness [Unknown]
  - Apnoea [Unknown]
